FAERS Safety Report 21579262 (Version 2)
Quarter: 2022Q4

REPORT INFORMATION
  Report Type: Spontaneous
  Country: US (occurrence: US)
  Receive Date: 20221110
  Receipt Date: 20221221
  Transmission Date: 20230112
  Serious: No
  Sender: FDA-Public Use
  Company Number: US-JNJFOC-20221118868

PATIENT
  Age: 69 Year
  Sex: Female

DRUGS (5)
  1. OPSUMIT [Suspect]
     Active Substance: MACITENTAN
     Indication: Product used for unknown indication
     Route: 048
     Dates: start: 20220926
  2. PREDNISONE [Concomitant]
     Active Substance: PREDNISONE
     Indication: Pulmonary arterial hypertension
     Dates: start: 20220926
  3. PREDNISONE [Concomitant]
     Active Substance: PREDNISONE
     Indication: Scar
  4. LASIX [Concomitant]
     Active Substance: FUROSEMIDE
     Indication: Swelling
     Dates: start: 20220926
  5. SILDENAFIL [Concomitant]
     Active Substance: SILDENAFIL
     Indication: Pulmonary arterial hypertension
     Dates: start: 20220923

REACTIONS (1)
  - Illness [Unknown]
